FAERS Safety Report 8710570 (Version 3)
Quarter: 2019Q3

REPORT INFORMATION
  Report Type: Spontaneous
  Country: FR (occurrence: FR)
  Receive Date: 20120807
  Receipt Date: 20190829
  Transmission Date: 20191005
  Serious: Yes (Hospitalization, Other)
  Sender: FDA-Public Use
  Company Number: FR-PFIZER INC-2012189377

PATIENT
  Age: 81 Year
  Sex: Male

DRUGS (6)
  1. ZOLTUM [Concomitant]
     Dosage: UNK
  2. CORDARONE [Suspect]
     Active Substance: AMIODARONE HYDROCHLORIDE
     Indication: ATRIAL FIBRILLATION
     Dosage: 200 MG, QD
     Route: 048
     Dates: end: 20120525
  3. ARANESP [Concomitant]
     Active Substance: DARBEPOETIN ALFA
     Indication: MYELODYSPLASTIC SYNDROME
     Dosage: UNK
  4. DOLIPRANE [Concomitant]
     Active Substance: ACETAMINOPHEN
     Dosage: UNK
  5. LYRICA [Concomitant]
     Active Substance: PREGABALIN
     Dosage: UNK
  6. LAMALINE [Concomitant]
     Dosage: UNK

REACTIONS (7)
  - Pulmonary function test decreased [Unknown]
  - Interstitial lung disease [Unknown]
  - Atrial fibrillation [Unknown]
  - Renal failure [Unknown]
  - Bacterial test positive [Unknown]
  - Cardiac failure [Unknown]
  - Productive cough [Unknown]

NARRATIVE: CASE EVENT DATE: 201205
